FAERS Safety Report 18844930 (Version 1)
Quarter: 2021Q1

REPORT INFORMATION
  Report Type: Spontaneous
  Country: DK (occurrence: DK)
  Receive Date: 20210204
  Receipt Date: 20210204
  Transmission Date: 20210419
  Serious: Yes (Disabling)
  Sender: FDA-Public Use
  Company Number: DK-BAYER-2021-039537

PATIENT
  Age: 35 Year
  Sex: Female
  Weight: 62 kg

DRUGS (1)
  1. MIRENA [Suspect]
     Active Substance: LEVONORGESTREL
     Indication: CONTRACEPTION
     Dosage: 20 ?G PER DAY, CONTINUOUSLY
     Dates: start: 20201110

REACTIONS (8)
  - Disturbance in attention [Unknown]
  - Anxiety [Unknown]
  - Cognitive disorder [Unknown]
  - Fatigue [Unknown]
  - Affect lability [Unknown]
  - Flat affect [Unknown]
  - Depression [Not Recovered/Not Resolved]
  - Restlessness [Unknown]

NARRATIVE: CASE EVENT DATE: 20201110
